FAERS Safety Report 7088091-3 (Version None)
Quarter: 2010Q4

REPORT INFORMATION
  Report Type: 
  Country: None (occurrence: None)
  Receive Date: 20101108
  Receipt Date: 20101025
  Transmission Date: 20110411
  Serious: Yes (Other)
  Sender: FDA-Public Use
  Company Number: US-ELI_LILLY_AND_COMPANY-US201009004086

PATIENT
  Sex: Female

DRUGS (13)
  1. FORTEO [Suspect]
     Indication: OSTEOPOROSIS
     Dosage: 20 UG, DAILY (1/D)
     Route: 065
     Dates: start: 20090727
  2. LEVOTHYROXINE [Concomitant]
     Dosage: UNK, UNKNOWN
     Route: 065
  3. PRILOSEC [Concomitant]
     Dosage: UNK, UNKNOWN
     Route: 065
  4. VOLTAREN                                /SCH/ [Concomitant]
     Dosage: UNK, UNKNOWN
     Route: 065
  5. HYDROCODONE BITARTRATE [Concomitant]
     Dosage: UNK, UNKNOWN
     Route: 065
  6. LIPITOR [Concomitant]
     Dosage: UNK, UNKNOWN
     Route: 065
  7. FISH OIL [Concomitant]
     Dosage: UNK, UNKNOWN
     Route: 065
  8. ASCORBIC ACID [Concomitant]
     Dosage: UNK, UNKNOWN
     Route: 065
  9. CLARITIN [Concomitant]
     Dosage: UNK, UNKNOWN
     Route: 065
  10. FLONASE [Concomitant]
     Dosage: UNK, UNKNOWN
     Route: 065
  11. COMBIGAN [Concomitant]
     Dosage: UNK, UNKNOWN
     Route: 065
  12. LUMIGAN [Concomitant]
     Dosage: UNK, UNKNOWN
     Route: 065
  13. TYLENOL (CAPLET) [Concomitant]
     Indication: ARTHRITIS
     Dosage: UNK, UNKNOWN
     Route: 065

REACTIONS (5)
  - ASTHENIA [None]
  - FACIAL BONES FRACTURE [None]
  - FALL [None]
  - MALAISE [None]
  - NAUSEA [None]
